FAERS Safety Report 13209413 (Version 1)
Quarter: 2017Q1

REPORT INFORMATION
  Report Type: Spontaneous
  Country: US (occurrence: US)
  Receive Date: 20170209
  Receipt Date: 20170209
  Transmission Date: 20170428
  Serious: No
  Sender: FDA-Public Use
  Company Number: US-ALLERGAN-1637513US

PATIENT
  Sex: Female

DRUGS (4)
  1. BOTOX [Suspect]
     Active Substance: ONABOTULINUMTOXINA
     Dosage: 45 UNITS, SINGLE
     Route: 030
     Dates: start: 201511
  2. PROTONIX [Concomitant]
     Active Substance: PANTOPRAZOLE SODIUM
     Indication: GASTRIC POLYPS
     Route: 048
  3. BOTOX [Suspect]
     Active Substance: ONABOTULINUMTOXINA
     Indication: FACIAL SPASM
     Dosage: 100 UNITS, SINGLE
     Route: 030
     Dates: start: 20160412, end: 20160412
  4. BOTOX [Suspect]
     Active Substance: ONABOTULINUMTOXINA
     Dosage: UNK
     Route: 030
     Dates: start: 201508, end: 201508

REACTIONS (8)
  - Swelling face [Not Recovered/Not Resolved]
  - Contusion [Recovered/Resolved]
  - Therapeutic response decreased [Unknown]
  - Dizziness [Not Recovered/Not Resolved]
  - Balance disorder [Not Recovered/Not Resolved]
  - Vision blurred [Recovered/Resolved]
  - Confusional state [Not Recovered/Not Resolved]
  - Injection site pain [Not Recovered/Not Resolved]
